FAERS Safety Report 10058337 (Version 1)
Quarter: 2014Q2

REPORT INFORMATION
  Report Type: Spontaneous
  Country: US (occurrence: None)
  Receive Date: 20140402
  Receipt Date: 20140402
  Transmission Date: 20141212
  Serious: Yes (Other)
  Sender: FDA-Public Use
  Company Number: FK201401031

PATIENT
  Age: 69 Year
  Sex: Female

DRUGS (7)
  1. HEPARIN [Suspect]
     Indication: ANTICOAGULANT THERAPY
     Dosage: 2000 USP UNITS, BOLUS, INTRAVENOUS BOLUS
     Route: 040
  2. METHYLPREDISOLONE (METHYLPREDNISOLONE) [Concomitant]
  3. THYMOGLOBULIN (ANTITHYMOCYTE IMMUNOGLOBULIN (RABBIT)) [Concomitant]
  4. ALBUMIN (ALBUMIN HUMAN) [Concomitant]
  5. NORMAL SALINE (SODIUM CHLORIDE) [Concomitant]
  6. PACKED RED BLOOD CELLS (RED BLOOD CELLS, CONCENTRATED) [Concomitant]
  7. WARFARIN (WARFARIN) [Concomitant]

REACTIONS (2)
  - Retroperitoneal haematoma [None]
  - Haematocrit decreased [None]
